FAERS Safety Report 4472630-2 (Version None)
Quarter: 2004Q4

REPORT INFORMATION
  Report Type: 
  Country: None (occurrence: None)
  Receive Date: 20041008
  Receipt Date: 20040922
  Transmission Date: 20050328
  Serious: Yes (Other)
  Sender: FDA-Public Use
  Company Number: M2004-1454

PATIENT
  Age: 5 Year
  Sex: Male

DRUGS (1)
  1. PENICILLIN [Suspect]
     Indication: PNEUMONIA

REACTIONS (2)
  - EYE REDNESS [None]
  - RASH MACULO-PAPULAR [None]
